FAERS Safety Report 7141935-9 (Version None)
Quarter: 2010Q4

REPORT INFORMATION
  Report Type: 
  Country: None (occurrence: None)
  Receive Date: 20101117
  Receipt Date: 20100823
  Transmission Date: 20110411
  Serious: No
  Sender: FDA-Public Use
  Company Number: WAES 1008USA03522

PATIENT
  Age: 52 Year
  Sex: Male

DRUGS (1)
  1. ISENTRESS [Suspect]
     Indication: HIV INFECTION
     Dosage: 400 MG/BID/PO

REACTIONS (2)
  - HALLUCINATION [None]
  - PARANOIA [None]
